FAERS Safety Report 5156002-3 (Version None)
Quarter: 2006Q4

REPORT INFORMATION
  Report Type: 
  Country: None (occurrence: None)
  Receive Date: 20061122
  Receipt Date: 20061108
  Transmission Date: 20070319
  Serious: Yes (Death, Hospitalization)
  Sender: FDA-Public Use
  Company Number: HQWYE880108NOV06

PATIENT
  Sex: Female

DRUGS (1)
  1. ENBREL [Suspect]
     Indication: RHEUMATOID ARTHRITIS
     Route: 058
     Dates: start: 20060101, end: 20061027

REACTIONS (5)
  - DEATH [None]
  - HEPATIC ENZYME ABNORMAL [None]
  - MALAISE [None]
  - NAUSEA [None]
  - PAIN [None]
